FAERS Safety Report 4446013-5 (Version None)
Quarter: 2004Q3

REPORT INFORMATION
  Report Type: 
  Country: None (occurrence: None)
  Receive Date: 20040903
  Receipt Date: 20040819
  Transmission Date: 20050211
  Serious: Yes (Hospitalization)
  Sender: FDA-Public Use
  Company Number: 200042

PATIENT
  Age: 47 Year
  Sex: Male
  Weight: 73.4827 kg

DRUGS (3)
  1. AVONEX [Suspect]
     Indication: MULTIPLE SCLEROSIS
     Dosage: 30 MCG QW  IM
     Route: 030
     Dates: start: 19960101, end: 20031201
  2. AVONEX [Suspect]
     Indication: MULTIPLE SCLEROSIS
     Dosage: 30 MCG QW IM
     Route: 030
     Dates: start: 20031201
  3. VICODIN [Concomitant]

REACTIONS (6)
  - DECUBITUS ULCER [None]
  - DEHYDRATION [None]
  - INFECTED SKIN ULCER [None]
  - MULTIPLE SCLEROSIS [None]
  - TREMOR [None]
  - URINARY TRACT INFECTION [None]
